FAERS Safety Report 8985084 (Version 5)
Quarter: 2013Q2

REPORT INFORMATION
  Report Type: Spontaneous
  Country: HU (occurrence: HU)
  Receive Date: 20121226
  Receipt Date: 20130422
  Transmission Date: 20140414
  Serious: Yes (Death, Other)
  Sender: FDA-Public Use
  Company Number: PHHY2012HU118585

PATIENT
  Age: 10 Month
  Sex: 0

DRUGS (4)
  1. CICLOSPORIN [Suspect]
     Indication: LIVER TRANSPLANT
     Dates: start: 201005
  2. ANTITHYMOCYTE IMMUNOGLOBULIN [Suspect]
     Indication: TRANSPLANT REJECTION
  3. CORTICOSTEROID DERIVATIVES [Concomitant]
  4. MYCOPHENOLATE MOFETIL [Concomitant]

REACTIONS (4)
  - Septic shock [Fatal]
  - Sepsis [Fatal]
  - Infection [Fatal]
  - Convulsion [Unknown]
